FAERS Safety Report 18761582 (Version 1)
Quarter: 2021Q1

REPORT INFORMATION
  Report Type: Spontaneous
  Country: US (occurrence: US)
  Receive Date: 20210120
  Receipt Date: 20210120
  Transmission Date: 20210419
  Serious: No
  Sender: FDA-Public Use
  Company Number: US-AMGEN-USASP2021008578

PATIENT
  Age: 38 Year
  Sex: Female

DRUGS (4)
  1. VITAMIN B6 [Concomitant]
     Active Substance: PYRIDOXINE HYDROCHLORIDE
     Dosage: UNK
  2. SPIRONOLACTON [Concomitant]
     Active Substance: SPIRONOLACTONE
  3. ADDERALL [Concomitant]
     Active Substance: AMPHETAMINE ASPARTATE\AMPHETAMINE SULFATE\DEXTROAMPHETAMINE SACCHARATE\DEXTROAMPHETAMINE SULFATE
     Dosage: UNK
  4. OTEZLA [Suspect]
     Active Substance: APREMILAST
     Indication: SKIN DISORDER
     Dosage: 30 MILLIGRAM, BID
     Route: 048
     Dates: start: 20201105

REACTIONS (3)
  - Product dose omission issue [Unknown]
  - Off label use [Unknown]
  - Nasopharyngitis [Recovered/Resolved]

NARRATIVE: CASE EVENT DATE: 20201105
